FAERS Safety Report 12348861 (Version 2)
Quarter: 2016Q2

REPORT INFORMATION
  Report Type: Spontaneous
  Country: US (occurrence: US)
  Receive Date: 20160509
  Receipt Date: 20160510
  Transmission Date: 20160815
  Serious: Yes (Other)
  Sender: FDA-Public Use
  Company Number: US-ELI_LILLY_AND_COMPANY-US201605000874

PATIENT
  Age: 65 Year
  Sex: Male

DRUGS (2)
  1. HUMALOG [Suspect]
     Active Substance: INSULIN LISPRO
     Indication: DIABETES MELLITUS
     Dosage: 14 U, TID
     Route: 065
     Dates: start: 2007
  2. LANTUS [Concomitant]
     Active Substance: INSULIN GLARGINE
     Indication: PRODUCT USED FOR UNKNOWN INDICATION

REACTIONS (5)
  - Diabetic retinopathy [Unknown]
  - Blood glucose increased [Recovered/Resolved]
  - Blood glucose increased [Recovered/Resolved]
  - Blindness unilateral [Unknown]
  - Underdose [Unknown]

NARRATIVE: CASE EVENT DATE: 201510
